FAERS Safety Report 5358316-0 (Version None)
Quarter: 2007Q2

REPORT INFORMATION
  Report Type: 
  Country: None (occurrence: None)
  Receive Date: 20070530
  Receipt Date: 20061206
  Transmission Date: 20071010
  Serious: Yes (Other)
  Sender: FDA-Public Use
  Company Number: US200602005582

PATIENT
  Age: 39 Year
  Sex: Female
  Weight: 134.2 kg

DRUGS (4)
  1. ZYPREXA [Suspect]
     Indication: ANXIETY
     Dosage: 10 MG
     Dates: start: 20040101
  2. QUETIAPINE FUMARATE [Concomitant]
  3. RISPERIDONE [Concomitant]
  4. HYDROCHLORZIDE (HYDROCHLOROTHIAZIDE) [Concomitant]

REACTIONS (3)
  - DIABETES MELLITUS NON-INSULIN-DEPENDENT [None]
  - OBESITY [None]
  - WEIGHT INCREASED [None]
